FAERS Safety Report 7194668-7 (Version None)
Quarter: 2010Q4

REPORT INFORMATION
  Report Type: 
  Country: None (occurrence: None)
  Receive Date: 20101223
  Receipt Date: 20101216
  Transmission Date: 20110411
  Serious: Yes (Other)
  Sender: FDA-Public Use
  Company Number: US-WATSON-2010-16328

PATIENT
  Sex: Female

DRUGS (2)
  1. METOCLOPRAMIDE HYDROCHLORIDE [Suspect]
     Indication: PRODUCT USED FOR UNKNOWN INDICATION
     Dosage: UNK
     Route: 065
     Dates: start: 20050101, end: 20100601
  2. REGLAN [Suspect]
     Indication: PRODUCT USED FOR UNKNOWN INDICATION
     Dosage: UNK
     Route: 065
     Dates: start: 20050101, end: 20100601

REACTIONS (4)
  - CONVULSION [None]
  - DYSKINESIA [None]
  - INCORRECT DRUG ADMINISTRATION DURATION [None]
  - RESTLESS LEGS SYNDROME [None]
